FAERS Safety Report 12100764 (Version 2)
Quarter: 2016Q1

REPORT INFORMATION
  Report Type: Spontaneous
  Country: AU (occurrence: AU)
  Receive Date: 20160222
  Receipt Date: 20160302
  Transmission Date: 20160526
  Serious: Yes (Death)
  Sender: FDA-Public Use
  Company Number: AU-TEVA-634938ISR

PATIENT
  Age: 30 Year
  Sex: Male

DRUGS (13)
  1. CYCLOPHOSPHAMIDE. [Suspect]
     Active Substance: CYCLOPHOSPHAMIDE
  2. IDARUBICIN [Suspect]
     Active Substance: IDARUBICIN
     Route: 065
  3. DEXAMETHASONE. [Suspect]
     Active Substance: DEXAMETHASONE
  4. NELARABINE [Suspect]
     Active Substance: NELARABINE
  5. FLUDARABINE PHOSPHATE. [Suspect]
     Active Substance: FLUDARABINE PHOSPHATE
     Route: 065
  6. VINCRISTINE SULPHATE [Suspect]
     Active Substance: VINCRISTINE SULFATE
  7. GRAN [Suspect]
     Active Substance: FILGRASTIM
  8. CYTARABINE. [Suspect]
     Active Substance: CYTARABINE
  9. MERCAPTOPURINE. [Suspect]
     Active Substance: MERCAPTOPURINE
  10. ADRIACIN [Suspect]
     Active Substance: DOXORUBICIN HYDROCHLORIDE
  11. METHOTREXATE [Suspect]
     Active Substance: METHOTREXATE
     Route: 065
  12. LEUNASE INJECTION [Suspect]
     Active Substance: ASPARAGINASE
  13. PREDNISOLONE. [Suspect]
     Active Substance: PREDNISOLONE

REACTIONS (6)
  - Systemic mycosis [Fatal]
  - Neutropenia [Fatal]
  - Infective aneurysm [Fatal]
  - Pyrexia [Fatal]
  - Condition aggravated [Fatal]
  - Haemorrhage [Fatal]
